FAERS Safety Report 19840354 (Version 1)
Quarter: 2021Q3

REPORT INFORMATION
  Report Type: Spontaneous
  Country: US (occurrence: US)
  Receive Date: 20210916
  Receipt Date: 20210916
  Transmission Date: 20211014
  Serious: Yes (Hospitalization)
  Sender: FDA-Public Use
  Company Number: None

PATIENT
  Age: 51 Year
  Sex: Female
  Weight: 117.48 kg

DRUGS (17)
  1. ASPIRIN. [Concomitant]
     Active Substance: ASPIRIN
  2. FAMOTIDINE. [Concomitant]
     Active Substance: FAMOTIDINE
  3. RITUXIMAB. [Concomitant]
     Active Substance: RITUXIMAB
  4. TRAZODAONE [Concomitant]
  5. TRULICITY [Suspect]
     Active Substance: DULAGLUTIDE
     Indication: TYPE 2 DIABETES MELLITUS
     Dates: start: 20170307, end: 20210301
  6. HCTZ [Concomitant]
     Active Substance: HYDROCHLOROTHIAZIDE
  7. GABAPENTIN. [Concomitant]
     Active Substance: GABAPENTIN
  8. ONDANSETRON [Concomitant]
     Active Substance: ONDANSETRON
  9. LEVEMIR [Concomitant]
     Active Substance: INSULIN DETEMIR
  10. NOVOLOG [Concomitant]
     Active Substance: INSULIN ASPART
  11. ATORVASTATIN [Concomitant]
     Active Substance: ATORVASTATIN
  12. MECLIZINE [Concomitant]
     Active Substance: MECLIZINE HYDROCHLORIDE
  13. METHOTREXATE. [Concomitant]
     Active Substance: METHOTREXATE
  14. METOPROLOL. [Concomitant]
     Active Substance: METOPROLOL
  15. LISINOPRIL. [Concomitant]
     Active Substance: LISINOPRIL
  16. CETIRIZINE [Concomitant]
     Active Substance: CETIRIZINE HYDROCHLORIDE
  17. VITAMIN D2 [Concomitant]
     Active Substance: ERGOCALCIFEROL

REACTIONS (2)
  - Cholelithiasis [None]
  - Pancreatitis acute [None]

NARRATIVE: CASE EVENT DATE: 20210301
